FAERS Safety Report 8470490-6 (Version None)
Quarter: 2012Q2

REPORT INFORMATION
  Report Type: 
  Country: None (occurrence: None)
  Receive Date: 20120627
  Receipt Date: 20110502
  Transmission Date: 20120825
  Serious: Yes (Hospitalization)
  Sender: FDA-Public Use
  Company Number: US-MYLANLABS-2011S1009139

PATIENT
  Age: 64 Year
  Sex: Male
  Weight: 90.72 kg

DRUGS (7)
  1. PERFOROMIST [Suspect]
     Route: 055
  2. PRAVASTATIN [Concomitant]
  3. LISINOPRIL [Concomitant]
  4. PERFOROMIST [Suspect]
     Route: 055
     Dates: start: 20110101
  5. MUCINEX [Concomitant]
  6. IPRATROPIUM BROMIDE [Concomitant]
  7. COMBIVENT [Concomitant]

REACTIONS (1)
  - DYSPNOEA [None]
